FAERS Safety Report 10038802 (Version 2)
Quarter: 2014Q2

REPORT INFORMATION
  Report Type: Spontaneous
  Country: US (occurrence: US)
  Receive Date: 20140326
  Receipt Date: 20140605
  Transmission Date: 20141212
  Serious: No
  Sender: FDA-Public Use
  Company Number: US-TEVA-471199USA

PATIENT
  Age: 18 Year
  Sex: Female
  Weight: 79 kg

DRUGS (2)
  1. PARAGARD 380A [Suspect]
     Indication: CONTRACEPTION
     Route: 015
     Dates: start: 20140213, end: 20140223
  2. PARAGARD 380A [Suspect]
     Route: 015
     Dates: start: 20140227

REACTIONS (1)
  - Device expulsion [Recovered/Resolved]
